FAERS Safety Report 5053406-4 (Version None)
Quarter: 2006Q3

REPORT INFORMATION
  Report Type: 
  Country: None (occurrence: None)
  Receive Date: 20060718
  Receipt Date: 20060707
  Transmission Date: 20061208
  Serious: Yes (Hospitalization, Other)
  Sender: FDA-Public Use
  Company Number: BR-JNJFOC-20060701642

PATIENT
  Age: 23 Month
  Sex: Male
  Weight: 12 kg

DRUGS (2)
  1. ACETAMINOPHEN [Suspect]
     Dosage: 19 DROPS, 3 HOURS LATER
  2. ACETAMINOPHEN [Suspect]
     Indication: PYREXIA
     Dosage: 12 DROPS

REACTIONS (3)
  - CONVULSION [None]
  - MEDICATION ERROR [None]
  - PYREXIA [None]
